FAERS Safety Report 11889629 (Version 2)
Quarter: 2016Q1

REPORT INFORMATION
  Report Type: Spontaneous
  Country: US (occurrence: US)
  Receive Date: 20160105
  Receipt Date: 20160113
  Transmission Date: 20160526
  Serious: Yes (Hospitalization)
  Sender: FDA-Public Use
  Company Number: US-BAYER-2016-000256

PATIENT
  Age: 69 Year
  Sex: Male

DRUGS (2)
  1. AMBRISENTAN [Suspect]
     Active Substance: AMBRISENTAN
     Dosage: 10 MG, QD
     Dates: start: 20151009
  2. ADEMPAS [Suspect]
     Active Substance: RIOCIGUAT

REACTIONS (6)
  - Post procedural discomfort [None]
  - Dyspnoea [None]
  - Nasal congestion [None]
  - Fluid overload [None]
  - Limb operation [None]
  - Cough [None]
